FAERS Safety Report 5788384-3 (Version None)
Quarter: 2008Q2

REPORT INFORMATION
  Report Type: 
  Country: None (occurrence: None)
  Receive Date: 20080625
  Receipt Date: 20080616
  Transmission Date: 20081010
  Serious: Yes (Other)
  Sender: FDA-Public Use
  Company Number: JP-PFIZER INC-2008051233

PATIENT
  Sex: Male

DRUGS (1)
  1. REVATIO [Suspect]
     Route: 048

REACTIONS (1)
  - PLATELET COUNT DECREASED [None]
